FAERS Safety Report 22273868 (Version 1)
Quarter: 2023Q2

REPORT INFORMATION
  Report Type: Spontaneous
  Country: US (occurrence: US)
  Receive Date: 20230502
  Receipt Date: 20230502
  Transmission Date: 20230721
  Serious: Yes (Life-Threatening, Hospitalization, Other)
  Sender: FDA-Public Use
  Company Number: US-ORGANON-O2304USA002616

PATIENT
  Sex: Male
  Weight: 85 kg

DRUGS (3)
  1. ZOCOR [Suspect]
     Active Substance: SIMVASTATIN
     Dosage: UNK
     Route: 048
     Dates: end: 20230413
  2. XARELTO [Suspect]
     Active Substance: RIVAROXABAN
     Dosage: UNK
     Dates: end: 20230413
  3. PAXLOVID [Suspect]
     Active Substance: NIRMATRELVIR\RITONAVIR
     Indication: COVID-19
     Dosage: UNK, DAILY
     Route: 048
     Dates: start: 20230413, end: 20230417

REACTIONS (4)
  - Cerebral artery occlusion [Unknown]
  - Thrombosis [Unknown]
  - Embolic stroke [Unknown]
  - COVID-19 [Unknown]

NARRATIVE: CASE EVENT DATE: 20230101
